FAERS Safety Report 10347610 (Version 2)
Quarter: 2014Q3

REPORT INFORMATION
  Report Type: Spontaneous
  Country: US (occurrence: None)
  Receive Date: 20140725
  Receipt Date: 20140801
  Transmission Date: 20150326
  Serious: Yes (Death, Hospitalization)
  Sender: FDA-Public Use
  Company Number: UNT-2014-004085

PATIENT
  Age: 75 Year
  Sex: Male
  Weight: 70.3 kg

DRUGS (2)
  1. TYVASO [Suspect]
     Active Substance: TREPROSTINIL
     Indication: COR PULMONALE CHRONIC
     Route: 055
     Dates: start: 20140625
  2. ADCIRCA [Concomitant]
     Active Substance: TADALAFIL

REACTIONS (6)
  - Hypoxia [None]
  - Hypotension [None]
  - Renal failure acute [None]
  - Renal failure chronic [None]
  - Disease progression [None]
  - Syncope [None]

NARRATIVE: CASE EVENT DATE: 20140710
